FAERS Safety Report 12483490 (Version 1)
Quarter: 2016Q2

REPORT INFORMATION
  Report Type: Spontaneous
  Country: US (occurrence: US)
  Receive Date: 20160621
  Receipt Date: 20160621
  Transmission Date: 20160815
  Serious: Yes (Other)
  Sender: FDA-Public Use
  Company Number: US-ROCHE-1776024

PATIENT
  Age: 54 Year
  Sex: Male
  Weight: 82.17 kg

DRUGS (11)
  1. PREDNISONE. [Concomitant]
     Active Substance: PREDNISONE
     Dosage: 4 TAB X 5 DAYS, 3 TAB X 2 DAYS, 2 TAB X 2 DAYS, 1 TAB X 2 DAYS, HALF TAB X 2 DAYS, STOP.
     Route: 065
  2. XOLAIR [Suspect]
     Active Substance: OMALIZUMAB
     Indication: ASTHMA
     Route: 058
     Dates: start: 20160603, end: 20160604
  3. FLUTICASONE PROPIONATE. [Concomitant]
     Active Substance: FLUTICASONE PROPIONATE
     Dosage: 50 MCG/ACT, SUSPENSION. 2 SPRAYS INTO EACH NOSTRIL DAILY.
     Route: 065
  4. FLOVENT [Concomitant]
     Active Substance: FLUTICASONE PROPIONATE
     Dosage: 100 MCG/ACT AEROSOL, INHALE 2 PUFFS 2 TIMES DAILY.
     Route: 065
  5. BUDESONIDE/FORMOTEROL [Concomitant]
     Active Substance: BUDESONIDE\FORMOTEROL
     Dosage: 160-4.5 MCG/ACT, INHALE 2 PUFFS 2 TIMES A DAY.
     Route: 065
  6. CETIRIZINE HCL [Concomitant]
     Active Substance: CETIRIZINE HYDROCHLORIDE
     Route: 048
  7. ALBUTEROL SULFATE. [Concomitant]
     Active Substance: ALBUTEROL SULFATE
     Indication: WHEEZING
     Dosage: 2.5 MG/3ML, AS NEEDED FOR WHEEZING.
     Route: 065
  8. SINGULAIR [Concomitant]
     Active Substance: MONTELUKAST SODIUM
     Dosage: 1 TABLET BY MOUTH EVERY EVENING.
     Route: 048
  9. BECLOMETHASONE [Concomitant]
     Active Substance: BECLOMETHASONE
     Dosage: 80 MCG/ACTINHALE 2 PUFFS 2 TIMES DAILY.
     Route: 065
  10. TIOTROPIUM [Concomitant]
     Active Substance: TIOTROPIUM
     Route: 065
  11. VENTOLIN HFA [Concomitant]
     Active Substance: ALBUTEROL SULFATE
     Dosage: INHALE 2 PUFFS AS NEEDED.
     Route: 065

REACTIONS (4)
  - Dyspnoea [Recovered/Resolved]
  - Productive cough [Unknown]
  - Chest discomfort [Recovered/Resolved]
  - Chest pain [Recovered/Resolved]

NARRATIVE: CASE EVENT DATE: 20160603
